FAERS Safety Report 16376954 (Version 2)
Quarter: 2021Q4

REPORT INFORMATION
  Report Type: Spontaneous
  Country: US (occurrence: US)
  Receive Date: 20190531
  Receipt Date: 20211117
  Transmission Date: 20220303
  Serious: No
  Sender: FDA-Public Use
  Company Number: US-PFIZER INC-2019207326

PATIENT
  Age: 62 Year
  Sex: Female
  Weight: 60.544 kg

DRUGS (4)
  1. PREMARIN [Suspect]
     Active Substance: ESTROGENS, CONJUGATED
     Indication: Rectocele
     Dosage: 0.625 MG, 1X/DAY
     Route: 067
     Dates: start: 20190507
  2. PREMARIN [Suspect]
     Active Substance: ESTROGENS, CONJUGATED
     Indication: Vulvovaginal discomfort
     Dosage: 1 G, 1X/DAY (NIGHTLY FOR TWO WEEKS)
     Route: 067
  3. PREMARIN [Suspect]
     Active Substance: ESTROGENS, CONJUGATED
     Dosage: 1 G, UNK (2 TO 3 TIMES WEEKLY THEREAFTER)
     Route: 067
  4. PREMARIN [Suspect]
     Active Substance: ESTROGENS, CONJUGATED
     Dosage: 1 G, (1 GRAM VAGINALLY AS DIRECTED 3 TIMES WEEKLY)
     Route: 067

REACTIONS (5)
  - Vulvovaginal mycotic infection [Recovering/Resolving]
  - Off label use [Unknown]
  - Product use in unapproved indication [Unknown]
  - Product prescribing error [Unknown]
  - Off label use [Unknown]

NARRATIVE: CASE EVENT DATE: 20190507
